FAERS Safety Report 17498289 (Version 1)
Quarter: 2020Q1

REPORT INFORMATION
  Report Type: Spontaneous
  Country: US (occurrence: US)
  Receive Date: 20200304
  Receipt Date: 20200304
  Transmission Date: 20200409
  Serious: No
  Sender: FDA-Public Use
  Company Number: US-PFIZER INC-2020096794

PATIENT

DRUGS (1)
  1. EUCRISA [Suspect]
     Active Substance: CRISABOROLE
     Indication: LICHEN PLANUS
     Dosage: UNK

REACTIONS (3)
  - Off label use [Unknown]
  - Application site pain [Unknown]
  - Product use in unapproved indication [Unknown]
